FAERS Safety Report 5625204-1 (Version None)
Quarter: 2008Q1

REPORT INFORMATION
  Report Type: 
  Country: None (occurrence: None)
  Receive Date: 20080130
  Receipt Date: 20080118
  Transmission Date: 20080703
  Serious: Yes (Life-Threatening, Hospitalization)
  Sender: FDA-Public Use
  Company Number: M-08-502

PATIENT
  Age: 69 Year
  Sex: Male
  Weight: 65 kg

DRUGS (1)
  1. ALBUTEIN [Suspect]
     Indication: HEPATIC CIRRHOSIS
     Dosage: 50 ML, 2X/DAILY; IV
     Route: 042
     Dates: start: 20080104, end: 20080110

REACTIONS (1)
  - SEPTIC SHOCK [None]
